FAERS Safety Report 8923776 (Version 1)
Quarter: 2012Q4

REPORT INFORMATION
  Report Type: 
  Country: US (occurrence: US)
  Receive Date: 20121126
  Receipt Date: 20121126
  Transmission Date: 20130627
  Serious: Yes (Hospitalization)
  Sender: FDA-Public Use
  Company Number: US-BAYER-2012-121840

PATIENT
  Age: 21 Year
  Sex: Female
  Weight: 65.76 kg

DRUGS (24)
  1. YASMIN [Suspect]
  2. LEXAPRO [Concomitant]
     Dosage: 20 mg, daily
  3. ADDERALL [Concomitant]
     Indication: ADHD
     Dosage: 15 mg, BID
  4. ALBUTEROL INHALER [Concomitant]
     Dosage: UNK UNK, PRN
  5. TYLENOL [Concomitant]
     Dosage: UNK UNK, PRN
  6. IBUPROFEN [Concomitant]
     Dosage: UNK, PRN
  7. TRAMADOL [Concomitant]
     Dosage: UNK, PRN
  8. ROBITUSSIN AC [CODEINE PHOSPHATE,GUAIFENESIN] [Concomitant]
     Indication: COUGH
     Dosage: UNK, PRN
  9. ROBITUSSIN WITH CODEINE [Concomitant]
     Indication: COUGH
     Dosage: UNK, PRN
  10. ROBITUSSIN WITH CODEINE [Concomitant]
     Indication: CONGESTION NASAL
  11. ZANAFLEX [Concomitant]
     Indication: HEADACHE
     Dosage: 10 mg, PRN
  12. TAMIFLU [Concomitant]
     Indication: INFLUENZA A VIRUS INFECTION
     Dosage: 75 mg, BID [times] 5 days
  13. PHENERGAN [Concomitant]
     Indication: NAUSEA
     Dosage: 25 mg, PRN
  14. PHENERGAN [Concomitant]
     Indication: VOMITING
  15. BIAXIN XL [Concomitant]
     Dosage: 500 mg, 2 tablets daily [times] 7 days.
  16. TUSSIONEX [Concomitant]
     Dosage: 1 teaspoon bid prn
  17. XANAX [Concomitant]
     Dosage: 0.25 mg, at night
  18. PERCOCET [Concomitant]
     Indication: HEADACHE
     Dosage: 5/325 mg one every 6 hours prn
  19. FIORICET [Concomitant]
     Indication: HEADACHE
     Dosage: 1-2 every 6 hours prn
  20. ZITHROMAX [Concomitant]
  21. Z-PAK [Concomitant]
  22. DEMEROL [Concomitant]
     Indication: PAIN MANAGEMENT
  23. ROCEPHIN [Concomitant]
  24. ATENOLOL [Concomitant]

REACTIONS (1)
  - Pulmonary embolism [Recovered/Resolved]
